FAERS Safety Report 5663560-9 (Version None)
Quarter: 2008Q1

REPORT INFORMATION
  Report Type: 
  Country: None (occurrence: None)
  Receive Date: 20080313
  Receipt Date: 20080220
  Transmission Date: 20080703
  Serious: No
  Sender: FDA-Public Use
  Company Number: US-BOEHRINGER INGELHEIM GMBH, GERMANY-2008-BP-01661BP

PATIENT
  Age: 44 Year
  Sex: Female
  Weight: 64 kg

DRUGS (5)
  1. SPIRIVA [Suspect]
     Indication: COUGH
     Route: 055
     Dates: start: 20070108
  2. SPIRIVA [Suspect]
  3. NACLOR [Concomitant]
  4. FAMOTIDINE [Concomitant]
  5. PULMICORT [Concomitant]

REACTIONS (1)
  - DRUG EFFECT DECREASED [None]
